FAERS Safety Report 4751204-X (Version None)
Quarter: 2005Q3

REPORT INFORMATION
  Report Type: 
  Country: None (occurrence: None)
  Receive Date: 20050822
  Receipt Date: 20050811
  Transmission Date: 20060218
  Serious: Yes (Other)
  Sender: FDA-Public Use
  Company Number: 2005-08-0912

PATIENT
  Age: 57 Year
  Sex: Female
  Weight: 66 kg

DRUGS (2)
  1. INTRON A [Suspect]
     Indication: HEPATITIS C
     Dosage: 6 MIU QD INTRAMUSCULAR
     Route: 030
     Dates: start: 20050708, end: 20050808
  2. REBETOL [Suspect]
     Indication: HEPATITIS C
     Dosage: 600 MG QD ORAL
     Route: 048
     Dates: start: 20050708, end: 20050808

REACTIONS (1)
  - CEREBRAL INFARCTION [None]
